FAERS Safety Report 10753907 (Version 1)
Quarter: 2015Q1

REPORT INFORMATION
  Report Type: Report from Study
  Country: JP (occurrence: None)
  Receive Date: 20150129
  Receipt Date: 20150129
  Transmission Date: 20150721
  Serious: Yes (Other)
  Sender: FDA-Public Use
  Company Number: 2014FE02764

PATIENT
  Age: 85 Year
  Sex: Male
  Weight: 45 kg

DRUGS (1)
  1. DEGARELIX [Suspect]
     Active Substance: DEGARELIX
     Dosage: 80 MG,MONTHLY,FORMULATION:INJECTION, SUBCUTANEOUS
     Route: 058
     Dates: start: 20130625

REACTIONS (5)
  - Cerebral infarction [None]
  - Thalamic infarction [None]
  - Urinary retention [None]
  - Haematuria [None]
  - Pyrexia [None]

NARRATIVE: CASE EVENT DATE: 20130618
